FAERS Safety Report 10315019 (Version 3)
Quarter: 2014Q4

REPORT INFORMATION
  Report Type: Report from Study
  Country: CN (occurrence: CN)
  Receive Date: 20140718
  Receipt Date: 20141022
  Transmission Date: 20150528
  Serious: Yes (Hospitalization)
  Sender: FDA-Public Use
  Company Number: PHHY2014CN073811

PATIENT
  Age: 25 Year
  Sex: Male
  Weight: 58 kg

DRUGS (1)
  1. MYCOPHENOLIC ACID. [Suspect]
     Active Substance: MYCOPHENOLIC ACID
     Indication: RENAL TRANSPLANT
     Dosage: 1080 MG, UNK
     Route: 048
     Dates: start: 20130505

REACTIONS (8)
  - Malaise [Recovering/Resolving]
  - Renal hypertension [Not Recovered/Not Resolved]
  - Pyrexia [Recovering/Resolving]
  - Condition aggravated [Recovering/Resolving]
  - Lung infection [Recovering/Resolving]
  - Hypertension [Recovering/Resolving]
  - Glomerulonephritis chronic [Recovering/Resolving]
  - Chronic kidney disease [Recovering/Resolving]

NARRATIVE: CASE EVENT DATE: 20130709
